FAERS Safety Report 21054500 (Version 1)
Quarter: 2022Q3

REPORT INFORMATION
  Report Type: Spontaneous
  Country: US (occurrence: US)
  Receive Date: 20220707
  Receipt Date: 20220707
  Transmission Date: 20221026
  Serious: Yes (Other)
  Sender: FDA-Public Use
  Company Number: US-TEVA-2022-US-2052290

PATIENT
  Age: 30 Year
  Sex: Male

DRUGS (5)
  1. VALPROIC ACID [Suspect]
     Active Substance: VALPROIC ACID
     Indication: Mitochondrial DNA mutation
     Route: 065
  2. VALPROIC ACID [Suspect]
     Active Substance: VALPROIC ACID
     Indication: Ataxia
  3. VALPROIC ACID [Suspect]
     Active Substance: VALPROIC ACID
     Indication: Neuropathy peripheral
  4. VALPROIC ACID [Suspect]
     Active Substance: VALPROIC ACID
     Indication: Dysarthria
  5. VALPROIC ACID [Suspect]
     Active Substance: VALPROIC ACID
     Indication: Ophthalmoplegia

REACTIONS (1)
  - Hypertransaminasaemia [Unknown]
